FAERS Safety Report 17648233 (Version 1)
Quarter: 2020Q2

REPORT INFORMATION
  Report Type: Spontaneous
  Country: US (occurrence: US)
  Receive Date: 20200408
  Receipt Date: 20200408
  Transmission Date: 20200713
  Serious: No
  Sender: FDA-Public Use
  Company Number: NVSC2020US090822

PATIENT
  Age: 57 Year
  Sex: Female

DRUGS (4)
  1. GLATOPA [Suspect]
     Active Substance: GLATIRAMER ACETATE
     Indication: LIP OEDEMA
  2. GLATOPA [Suspect]
     Active Substance: GLATIRAMER ACETATE
     Indication: CHILLS
     Dosage: 3 DF, QW
     Route: 058
     Dates: start: 20200331
  3. GLATOPA [Suspect]
     Active Substance: GLATIRAMER ACETATE
     Indication: PRURITUS
  4. GLATOPA [Suspect]
     Active Substance: GLATIRAMER ACETATE
     Indication: FLUSHING

REACTIONS (5)
  - Chills [Recovered/Resolved]
  - Flushing [Recovered/Resolved]
  - Product use in unapproved indication [Unknown]
  - Pruritus [Recovered/Resolved]
  - Lip oedema [Recovered/Resolved]

NARRATIVE: CASE EVENT DATE: 20200331
